FAERS Safety Report 25225675 (Version 2)
Quarter: 2025Q2

REPORT INFORMATION
  Report Type: Spontaneous
  Country: US (occurrence: US)
  Receive Date: 20250422
  Receipt Date: 20250422
  Transmission Date: 20250716
  Serious: Yes (Death, Hospitalization, Other)
  Sender: GILEAD
  Company Number: US-GILEAD-2025-0711169

PATIENT
  Sex: Male

DRUGS (1)
  1. EPCLUSA [Suspect]
     Active Substance: SOFOSBUVIR\VELPATASVIR
     Indication: Hepatitis C
     Route: 065

REACTIONS (7)
  - Hepatic failure [Fatal]
  - Renal failure [Fatal]
  - Cardiac failure [Fatal]
  - Fatigue [Unknown]
  - Gait disturbance [Unknown]
  - Disturbance in attention [Unknown]
  - Eating disorder [Unknown]
